FAERS Safety Report 25336850 (Version 2)
Quarter: 2025Q2

REPORT INFORMATION
  Report Type: Report from Study
  Country: US (occurrence: US)
  Receive Date: 20250520
  Receipt Date: 20250529
  Transmission Date: 20250717
  Serious: Yes (Hospitalization, Other)
  Sender: ABBVIE
  Company Number: US-ABBVIE-6281130

PATIENT
  Age: 79 Year
  Sex: Male

DRUGS (2)
  1. VYALEV [Suspect]
     Active Substance: FOSCARBIDOPA\FOSLEVODOPA
     Indication: Product used for unknown indication
     Route: 058
     Dates: start: 20250217
  2. VYALEV [Suspect]
     Active Substance: FOSCARBIDOPA\FOSLEVODOPA
     Route: 058
     Dates: start: 2025

REACTIONS (4)
  - Volvulus [Recovered/Resolved]
  - Dyskinesia [Not Recovered/Not Resolved]
  - Abdominal pain [Unknown]
  - Unevaluable event [Unknown]

NARRATIVE: CASE EVENT DATE: 20250201
